FAERS Safety Report 5105321-5 (Version None)
Quarter: 2006Q3

REPORT INFORMATION
  Report Type: 
  Country: None (occurrence: None)
  Receive Date: 20060912
  Receipt Date: 20060830
  Transmission Date: 20061208
  Serious: Yes (Hospitalization)
  Sender: FDA-Public Use
  Company Number: 2006-02266

PATIENT
  Age: 66 Year
  Sex: Male
  Weight: 61 kg

DRUGS (5)
  1. VELCADE [Suspect]
     Indication: B-CELL LYMPHOMA
     Dosage: 2.70 MG, INTRAVENOUS
     Route: 042
     Dates: start: 20060519, end: 20060817
  2. OMEPRAZOLE [Concomitant]
  3. SPECIAFOLDINE (FOLIC ACID) [Concomitant]
  4. BACTRIM [Concomitant]
  5. CARDENSIEL (BISOPROLOL FUMARATE) [Concomitant]

REACTIONS (2)
  - ARRHYTHMIA [None]
  - ATRIAL FIBRILLATION [None]
